FAERS Safety Report 5031346-4 (Version None)
Quarter: 2006Q2

REPORT INFORMATION
  Report Type: 
  Country: None (occurrence: None)
  Receive Date: 20060615
  Receipt Date: 20060602
  Transmission Date: 20061013
  Serious: Yes (Other)
  Sender: FDA-Public Use
  Company Number: 2006-01374

PATIENT
  Age: 35 Year
  Sex: Male

DRUGS (1)
  1. VELCADE [Suspect]
     Indication: MULTIPLE MYELOMA
     Dosage: 1.30 MG/M2, INTRAVENOUS
     Route: 042

REACTIONS (9)
  - CONDITION AGGRAVATED [None]
  - DRUG TOXICITY [None]
  - GASTROINTESTINAL TOXICITY [None]
  - GRAFT VERSUS HOST DISEASE [None]
  - NEUROTOXICITY [None]
  - PLATELET TOXICITY [None]
  - REFUSAL OF TREATMENT BY PATIENT [None]
  - SKIN DISORDER [None]
  - WHITE BLOOD CELL DISORDER [None]
